FAERS Safety Report 5328684-4 (Version None)
Quarter: 2007Q2

REPORT INFORMATION
  Report Type: 
  Country: None (occurrence: None)
  Receive Date: 20070518
  Receipt Date: 20070514
  Transmission Date: 20071010
  Serious: Yes (Other)
  Sender: FDA-Public Use
  Company Number: B0465550A

PATIENT
  Age: 6 Year
  Sex: Male
  Weight: 26 kg

DRUGS (8)
  1. RELENZA [Suspect]
     Indication: INFLUENZA
     Dosage: 10MG TWICE PER DAY
     Route: 055
     Dates: start: 20070305, end: 20070308
  2. ONON [Concomitant]
     Indication: SEASONAL ALLERGY
     Dosage: 337.5MG PER DAY
     Route: 048
     Dates: start: 20070303
  3. FLOMOX [Concomitant]
     Indication: BRONCHITIS
     Dosage: 300MG PER DAY
     Route: 048
     Dates: start: 20070305
  4. PENTOXYVERINE CITRATE [Concomitant]
     Indication: BRONCHITIS
     Dosage: 90MG PER DAY
     Route: 048
     Dates: start: 20070305
  5. HUSCODE [Concomitant]
     Indication: BRONCHITIS
     Dosage: 3TAB PER DAY
     Route: 048
     Dates: start: 20070305
  6. CLEANAL [Concomitant]
     Indication: BRONCHITIS
     Dosage: 600MG PER DAY
     Route: 048
     Dates: start: 20070305
  7. CALONAL [Concomitant]
     Indication: BRONCHITIS
     Dosage: 600MG PER DAY
     Route: 048
     Dates: start: 20070305
  8. SELBEX [Concomitant]
     Indication: GASTRITIS
     Dosage: 150MG PER DAY
     Route: 048
     Dates: start: 20070305

REACTIONS (3)
  - DELIRIUM [None]
  - HEADACHE [None]
  - THIRST [None]
